FAERS Safety Report 8359864-1 (Version None)
Quarter: 2012Q2

REPORT INFORMATION
  Report Type: 
  Country: None (occurrence: None)
  Receive Date: 20120515
  Receipt Date: 20120509
  Transmission Date: 20120825
  Serious: Yes (Disabling)
  Sender: FDA-Public Use
  Company Number: FR-ASTELLAS-2012EU000808

PATIENT
  Sex: Female

DRUGS (4)
  1. TACROLIMUS [Suspect]
     Indication: LIVER TRANSPLANT
     Dosage: 8 MG, UNKNOWN/D
     Route: 065
     Dates: start: 20111028
  2. PROGRAF [Suspect]
     Indication: LIVER TRANSPLANT
     Dosage: 8 MG, UNKNOWN/D
     Route: 065
  3. CORTICOSTEROID NOS [Concomitant]
     Dosage: UNK
     Route: 065
  4. TACROLIMUS [Suspect]
     Dosage: 7 MG, UNKNOWN/D
     Route: 065

REACTIONS (2)
  - ADVERSE DRUG REACTION [None]
  - MEDICATION ERROR [None]
